FAERS Safety Report 20093821 (Version 1)
Quarter: 2021Q4

REPORT INFORMATION
  Report Type: Spontaneous
  Country: US (occurrence: None)
  Receive Date: 20211119
  Receipt Date: 20211119
  Transmission Date: 20220303
  Serious: No
  Sender: FDA-Public Use
  Company Number: None

PATIENT
  Sex: Male

DRUGS (1)
  1. ENBREL [Suspect]
     Active Substance: ETANERCEPT
     Indication: Psoriatic arthropathy
     Dosage: OTHER QUANTITY : 1 PEN;?FREQUENCY : WEEKLY;?
     Route: 058
     Dates: start: 202106

REACTIONS (5)
  - Condition aggravated [None]
  - Nasopharyngitis [None]
  - Disorientation [None]
  - Emotional disorder [None]
  - Depressed mood [None]

NARRATIVE: CASE EVENT DATE: 20210601
